FAERS Safety Report 7979917-7 (Version None)
Quarter: 2011Q4

REPORT INFORMATION
  Report Type: 
  Country: None (occurrence: None)
  Receive Date: 20111208
  Receipt Date: 20111202
  Transmission Date: 20120403
  Serious: Yes (Death, Other)
  Sender: FDA-Public Use
  Company Number: 2011SP056505

PATIENT
  Age: 48 Year
  Sex: Male

DRUGS (8)
  1. MIRTAZAPINE [Suspect]
     Indication: DEPRESSION
     Dosage: 15;30;45 MG, QD, PO
     Route: 048
     Dates: start: 20110525, end: 20110606
  2. MIRTAZAPINE [Suspect]
     Indication: DEPRESSION
     Dosage: 15;30;45 MG, QD, PO
     Route: 048
     Dates: start: 20110521, end: 20110525
  3. MIRTAZAPINE [Suspect]
     Indication: DEPRESSION
     Dosage: 15;30;45 MG, QD, PO
     Route: 048
     Dates: start: 20110613
  4. MIRTAZAPINE [Suspect]
     Indication: DEPRESSION
     Dosage: 15;30;45 MG, QD, PO
     Route: 048
     Dates: start: 20110606, end: 20110613
  5. SILECE [Concomitant]
  6. LENDORMIN [Concomitant]
  7. LORAZEPAM [Concomitant]
  8. TRAZODONE HCL [Concomitant]

REACTIONS (2)
  - SUICIDE ATTEMPT [None]
  - COMPLETED SUICIDE [None]
